FAERS Safety Report 19102168 (Version 1)
Quarter: 2021Q2

REPORT INFORMATION
  Report Type: Spontaneous
  Country: CA (occurrence: CA)
  Receive Date: 20210407
  Receipt Date: 20210407
  Transmission Date: 20210717
  Serious: Yes (Other)
  Sender: FDA-Public Use
  Company Number: CA-PFIZER INC-2020359300

PATIENT
  Age: 58 Year
  Sex: Female
  Weight: 86.17 kg

DRUGS (10)
  1. VALTREX [Suspect]
     Active Substance: VALACYCLOVIR HYDROCHLORIDE
     Dosage: 500 MG, 1X/DAY
     Dates: end: 20200413
  2. ENBREL [Suspect]
     Active Substance: ETANERCEPT
     Dosage: 1 ML, WEEKLY
     Route: 065
     Dates: start: 2017, end: 20200828
  3. RABEPRAZOLE [Suspect]
     Active Substance: RABEPRAZOLE
     Indication: ABDOMINAL DISCOMFORT
     Dosage: 20 MG, 1X/DAY
     Route: 065
  4. TOCTINO [Suspect]
     Active Substance: ALITRETINOIN
     Dosage: 30 MG, 1X/DAY
     Dates: start: 202007, end: 202009
  5. PREDNISONE. [Suspect]
     Active Substance: PREDNISONE
     Dosage: 5 MG, 1X/DAY
     Route: 065
  6. PREDNISONE. [Suspect]
     Active Substance: PREDNISONE
     Dosage: 40 MG, 1X/DAY
     Dates: start: 2000
  7. CELECOXIB. [Concomitant]
     Active Substance: CELECOXIB
     Dosage: 200 MG, 1X/DAY
     Dates: start: 2015
  8. CRISABOROLE [Suspect]
     Active Substance: CRISABOROLE
     Dosage: UNK
     Route: 061
     Dates: start: 202007
  9. RABEPRAZOLE [Suspect]
     Active Substance: RABEPRAZOLE
     Indication: ABDOMINAL DISCOMFORT
  10. CEPHALEXIN [CEFALEXIN] [Suspect]
     Active Substance: CEPHALEXIN
     Dosage: 500 MG, 4X/DAY, FOR 7 DAYS
     Dates: start: 202003, end: 20200331

REACTIONS (11)
  - Off label use [Unknown]
  - Drug ineffective [Unknown]
  - Skin injury [Unknown]
  - Pruritus [Unknown]
  - Abdominal discomfort [Unknown]
  - Blister [Unknown]
  - Hepatic enzyme increased [Unknown]
  - Drug intolerance [Unknown]
  - Psoriatic arthropathy [Not Recovered/Not Resolved]
  - Pain in extremity [Unknown]
  - C-reactive protein increased [Unknown]

NARRATIVE: CASE EVENT DATE: 2017
